FAERS Safety Report 5578963-0 (Version None)
Quarter: 2008Q1

REPORT INFORMATION
  Report Type: 
  Country: None (occurrence: None)
  Receive Date: 20080102
  Receipt Date: 20071221
  Transmission Date: 20080703
  Serious: No
  Sender: FDA-Public Use
  Company Number: US-BAYER-200713706BWH

PATIENT
  Age: 35 Year
  Sex: Female

DRUGS (2)
  1. CIPRO [Suspect]
     Indication: URINARY TRACT INFECTION
     Route: 048
     Dates: start: 20070815, end: 20070817
  2. SUPPLEMENTAL VITAMINS [Concomitant]

REACTIONS (12)
  - ARTHRALGIA [None]
  - DIARRHOEA [None]
  - DYSPEPSIA [None]
  - FEELING ABNORMAL [None]
  - HEADACHE [None]
  - JOINT CREPITATION [None]
  - MENTAL DISORDER [None]
  - NAUSEA [None]
  - PAIN [None]
  - STOMACH DISCOMFORT [None]
  - THINKING ABNORMAL [None]
  - WEIGHT DECREASED [None]
